FAERS Safety Report 5281335-X (Version None)
Quarter: 2007Q2

REPORT INFORMATION
  Report Type: 
  Country: None (occurrence: None)
  Receive Date: 20070330
  Receipt Date: 20070322
  Transmission Date: 20071010
  Serious: Yes (Other)
  Sender: FDA-Public Use
  Company Number: US-BAYER-200710893BCC

PATIENT
  Age: 50 Year
  Sex: Female
  Weight: 91 kg

DRUGS (7)
  1. VANQUISH CAPLETS [Suspect]
     Indication: HEADACHE
     Route: 048
     Dates: start: 19970101
  2. TAGAMET [Concomitant]
  3. ZOMIG [Concomitant]
  4. ALBUTEROL [Concomitant]
  5. FLEXERIL [Concomitant]
  6. VICODIN [Concomitant]
  7. UNKNOWN MEDICATION FOR ANXIETY [Concomitant]

REACTIONS (3)
  - ABDOMINAL PAIN UPPER [None]
  - BREAST CANCER [None]
  - MIGRAINE [None]
